FAERS Safety Report 8096887-4 (Version None)
Quarter: 2012Q1

REPORT INFORMATION
  Report Type: 
  Country: None (occurrence: None)
  Receive Date: 20120129
  Receipt Date: 20111221
  Transmission Date: 20120608
  Serious: No
  Sender: FDA-Public Use
  Company Number: US-ABBOTT-11P-163-0880686-00

PATIENT
  Age: 62 Year
  Sex: Female

DRUGS (10)
  1. METHADONE HCL [Concomitant]
     Indication: PAIN
     Dosage: 150 MG PO:1/2 BOTTLE AM, 1/2 BOTTLE PM
     Route: 048
  2. LYRICA [Concomitant]
     Indication: NEURALGIA
     Dosage: 100MG:TWO OR THREE TIMES DAILY AS NEEDED
     Route: 048
  3. FUROSEMIDE [Concomitant]
     Indication: FLUID OVERLOAD
     Route: 048
  4. LEVOTHYROXINE SODIUM [Concomitant]
     Indication: HYPOTHYROIDISM
     Route: 048
  5. PROMETHAZINE [Concomitant]
     Indication: NAUSEA
     Dosage: TWICE DAILY AS REQUIRED
  6. ALBUTEROL [Concomitant]
     Indication: TOBACCO USER
  7. XANAX [Concomitant]
     Indication: ANXIETY
     Route: 048
  8. SIMVASTATIN [Concomitant]
     Indication: BLOOD CHOLESTEROL INCREASED
     Route: 048
  9. HUMIRA [Suspect]
     Indication: PSORIATIC ARTHROPATHY
     Dates: start: 20110701
  10. ALBUTEROL [Concomitant]
     Indication: DYSPNOEA

REACTIONS (6)
  - INJECTION SITE HAEMATOMA [None]
  - DEVICE MALFUNCTION [None]
  - INCREASED TENDENCY TO BRUISE [None]
  - INCORRECT DOSE ADMINISTERED [None]
  - INJECTION SITE HAEMORRHAGE [None]
  - SKIN FISSURES [None]
